FAERS Safety Report 8743248 (Version 4)
Quarter: 2014Q1

REPORT INFORMATION
  Report Type: Report from Study
  Country: FR (occurrence: FR)
  Receive Date: 20120824
  Receipt Date: 20140318
  Transmission Date: 20141002
  Serious: Yes (Hospitalization)
  Sender: FDA-Public Use
  Company Number: FR-GLAXOSMITHKLINE-B0824836A

PATIENT
  Age: 46 Year
  Sex: Female
  Weight: 120 kg

DRUGS (3)
  1. LAPATINIB [Suspect]
     Indication: BREAST CANCER
     Dosage: 1000MG PER DAY
     Route: 048
     Dates: start: 20120730
  2. DOCETAXEL [Suspect]
     Indication: BREAST CANCER
     Dosage: 200MGM2 CYCLIC
     Route: 042
     Dates: start: 20120730
  3. TRASTUZUMAB [Suspect]
     Indication: BREAST CANCER
     Dosage: 483MGM2 PER DAY
     Route: 042
     Dates: start: 20120730

REACTIONS (1)
  - Abdominal pain [Recovered/Resolved]
